FAERS Safety Report 6687444-2 (Version None)
Quarter: 2010Q2

REPORT INFORMATION
  Report Type: 
  Country: None (occurrence: None)
  Receive Date: 20100419
  Receipt Date: 20100412
  Transmission Date: 20101027
  Serious: Yes (Other)
  Sender: FDA-Public Use
  Company Number: PHHY2010US20945

PATIENT
  Sex: Female

DRUGS (3)
  1. FEMARA [Suspect]
     Dosage: 2.5 MG DAILY
     Route: 048
  2. LOVENOX [Suspect]
  3. HEPARIN [Suspect]

REACTIONS (7)
  - ABDOMINAL MASS [None]
  - ABDOMINAL OPERATION [None]
  - INJECTION SITE NECROSIS [None]
  - MASS EXCISION [None]
  - SUTURE REMOVAL [None]
  - VOLVULUS [None]
  - WOUND TREATMENT [None]
